FAERS Safety Report 13904963 (Version 5)
Quarter: 2018Q2

REPORT INFORMATION
  Report Type: Report from Study
  Country: NL (occurrence: NL)
  Receive Date: 20170825
  Receipt Date: 20180423
  Transmission Date: 20180711
  Serious: Yes (Death, Life-Threatening, Hospitalization, Disabling, Other)
  Sender: FDA-Public Use
  Company Number: NL-ASTRAZENECA-2016SF29392

PATIENT
  Age: 611 Month
  Sex: Female

DRUGS (28)
  1. MEDI4736 [Suspect]
     Active Substance: DURVALUMAB
     Indication: BLADDER TRANSITIONAL CELL CARCINOMA
     Route: 042
     Dates: start: 20161115, end: 20161115
  2. METOCLOPRAMIDE. [Concomitant]
     Active Substance: METOCLOPRAMIDE
     Indication: NAUSEA
     Route: 054
     Dates: start: 20161017, end: 20161108
  3. ABSTRAL [Concomitant]
     Active Substance: FENTANYL CITRATE
     Indication: PAIN IN EXTREMITY
     Dosage: 100 UG 0-6 TIMES A DAY, PRN
     Route: 060
     Dates: start: 20160930, end: 20161111
  4. PANTOPRAZOLE [Concomitant]
     Active Substance: PANTOPRAZOLE
     Indication: GASTROOESOPHAGEAL REFLUX DISEASE
     Route: 048
     Dates: start: 20161012, end: 20161202
  5. FENTANYL. [Concomitant]
     Active Substance: FENTANYL
     Indication: PAIN IN EXTREMITY
     Dosage: 12 UG/HOUR ONCE PER THREE DAYS
     Route: 062
     Dates: start: 20160920, end: 20160926
  6. FENTANYL. [Concomitant]
     Active Substance: FENTANYL
     Indication: ARTHRALGIA
     Dosage: 25 MG ONCE PER THREE DAYS
     Route: 062
     Dates: start: 20160926, end: 20160929
  7. FENTANYL. [Concomitant]
     Active Substance: FENTANYL
     Indication: ARTHRALGIA
     Dosage: 75 UG/HOUR ONCE PER THREE DAYS
     Route: 062
     Dates: start: 20161106, end: 20161111
  8. FENTANYL. [Concomitant]
     Active Substance: FENTANYL
     Indication: PAIN IN EXTREMITY
     Dosage: 75 UG/HOUR ONCE PER THREE DAYS
     Route: 062
     Dates: start: 20161115, end: 20161203
  9. METOCLOPRAMIDE. [Concomitant]
     Active Substance: METOCLOPRAMIDE
     Indication: NAUSEA
     Route: 054
     Dates: start: 20161109, end: 20161202
  10. NEURONTIN [Concomitant]
     Active Substance: GABAPENTIN
     Indication: PAIN IN EXTREMITY
     Route: 048
     Dates: start: 20161113, end: 20161115
  11. FENTANYL. [Concomitant]
     Active Substance: FENTANYL
     Indication: ARTHRALGIA
     Dosage: 75 UG/HOUR ONCE PER THREE DAYS
     Route: 062
     Dates: start: 20161115, end: 20161203
  12. AMITRIPTYLINE [Concomitant]
     Active Substance: AMITRIPTYLINE
     Indication: ARTHRALGIA
     Route: 048
     Dates: start: 20161027, end: 20161202
  13. FENTANYL. [Concomitant]
     Active Substance: FENTANYL
     Indication: ARTHRALGIA
     Dosage: 37 UG/HOUR ONCE PER THREE DAYS
     Route: 062
     Dates: start: 20160930, end: 20161103
  14. FENTANYL. [Concomitant]
     Active Substance: FENTANYL
     Indication: PAIN IN EXTREMITY
     Dosage: 50 UG/HOUR ONCE PER THREE DAYS
     Route: 062
     Dates: start: 20161104, end: 20161105
  15. FENTANYL. [Concomitant]
     Active Substance: FENTANYL
     Indication: PAIN IN EXTREMITY
     Dosage: 100 UG/HOUR ONCE PER THREE DAYS
     Route: 062
     Dates: start: 20161111, end: 20161114
  16. BISACODYL. [Concomitant]
     Active Substance: BISACODYL
     Indication: CONSTIPATION
     Route: 054
     Dates: start: 20161109, end: 20161205
  17. ABSTRAL [Concomitant]
     Active Substance: FENTANYL CITRATE
     Indication: PAIN IN EXTREMITY
     Dosage: 200 UG 0-6 TIMES A DAY, PRN
     Route: 060
     Dates: start: 20161111, end: 20161203
  18. NEURONTIN [Concomitant]
     Active Substance: GABAPENTIN
     Indication: PAIN IN EXTREMITY
     Route: 048
     Dates: start: 20161112, end: 20161113
  19. NEURONTIN [Concomitant]
     Active Substance: GABAPENTIN
     Indication: PAIN IN EXTREMITY
     Route: 048
     Dates: start: 20161115, end: 20161202
  20. FENTANYL. [Concomitant]
     Active Substance: FENTANYL
     Indication: PAIN IN EXTREMITY
     Dosage: 25 MG ONCE PER THREE DAYS
     Route: 062
     Dates: start: 20160926, end: 20160929
  21. PARACETAMOL [Concomitant]
     Active Substance: ACETAMINOPHEN
     Indication: ARTHRALGIA
     Route: 054
     Dates: start: 20161018, end: 20161203
  22. FENTANYL. [Concomitant]
     Active Substance: FENTANYL
     Indication: ARTHRALGIA
     Dosage: 12 UG/HOUR ONCE PER THREE DAYS
     Route: 062
     Dates: start: 20160920, end: 20160926
  23. FENTANYL. [Concomitant]
     Active Substance: FENTANYL
     Indication: PAIN IN EXTREMITY
     Dosage: 37 UG/HOUR ONCE PER THREE DAYS
     Route: 062
     Dates: start: 20160930, end: 20161103
  24. FENTANYL. [Concomitant]
     Active Substance: FENTANYL
     Indication: PAIN IN EXTREMITY
     Dosage: 75 UG/HOUR ONCE PER THREE DAYS
     Route: 062
     Dates: start: 20161106, end: 20161111
  25. AMITRIPTYLINE [Concomitant]
     Active Substance: AMITRIPTYLINE
     Indication: ARTHRALGIA
     Route: 048
     Dates: start: 20160930, end: 20161012
  26. FENTANYL. [Concomitant]
     Active Substance: FENTANYL
     Indication: ARTHRALGIA
     Dosage: 50 UG/HOUR ONCE PER THREE DAYS
     Route: 062
     Dates: start: 20161104, end: 20161105
  27. FENTANYL. [Concomitant]
     Active Substance: FENTANYL
     Indication: ARTHRALGIA
     Dosage: 100 UG/HOUR ONCE PER THREE DAYS
     Route: 062
     Dates: start: 20161111, end: 20161114
  28. MEDI4736 [Suspect]
     Active Substance: DURVALUMAB
     Indication: BLADDER TRANSITIONAL CELL CARCINOMA
     Route: 042
     Dates: start: 20161017, end: 20161017

REACTIONS (1)
  - Encephalopathy [Not Recovered/Not Resolved]

NARRATIVE: CASE EVENT DATE: 20161202
